FAERS Safety Report 14298402 (Version 1)
Quarter: 2017Q4

REPORT INFORMATION
  Report Type: Spontaneous
  Country: ES (occurrence: ES)
  Receive Date: 20171218
  Receipt Date: 20171218
  Transmission Date: 20180321
  Serious: Yes (Hospitalization, Other)
  Sender: FDA-Public Use
  Company Number: ES-MYLANLABS-2017M1079073

PATIENT
  Age: 32 Week
  Sex: Male

DRUGS (1)
  1. OLMESARTAN MEDOXOMIL. [Suspect]
     Active Substance: OLMESARTAN MEDOXOMIL
     Indication: PRODUCT USED FOR UNKNOWN INDICATION
     Route: 064

REACTIONS (11)
  - Pneumothorax [Recovered/Resolved]
  - Areflexia [Recovered/Resolved]
  - Pulmonary hypoplasia [Recovered/Resolved]
  - Foetal exposure during pregnancy [Recovered/Resolved]
  - Anuria [Recovered/Resolved]
  - Potter^s syndrome [Recovering/Resolving]
  - Hypotension [Recovered/Resolved]
  - Anaemia [Recovered/Resolved]
  - Hypotonia [Recovered/Resolved]
  - Renal failure [Recovered/Resolved]
  - Proteinuria [Recovered/Resolved]
